FAERS Safety Report 8113816-5 (Version None)
Quarter: 2012Q1

REPORT INFORMATION
  Report Type: 
  Country: None (occurrence: None)
  Receive Date: 20120203
  Receipt Date: 20120123
  Transmission Date: 20120608
  Serious: Yes (Other)
  Sender: FDA-Public Use
  Company Number: PHHY2012JP008372

PATIENT
  Sex: Female

DRUGS (6)
  1. DEPAKENE [Concomitant]
     Dosage: 400 MG, UNK
     Dates: start: 19950901
  2. INSULIN [Concomitant]
  3. NATEGLINIDE [Suspect]
     Dosage: 90 MG, TID
     Route: 048
     Dates: start: 20101001, end: 20110512
  4. TOPIRAMATE [Concomitant]
     Dosage: 300 MG, UNK
     Dates: start: 20110101
  5. FOLIC ACID [Concomitant]
  6. CLONAZEPAM [Concomitant]
     Dosage: 0.5 MG, UNK
     Dates: end: 20110512

REACTIONS (3)
  - AMNIOCENTESIS ABNORMAL [None]
  - ABNORMAL LABOUR [None]
  - MATERNAL EXPOSURE DURING PREGNANCY [None]
